FAERS Safety Report 7437224-5 (Version None)
Quarter: 2011Q2

REPORT INFORMATION
  Report Type: 
  Country: None (occurrence: None)
  Receive Date: 20110426
  Receipt Date: 20110414
  Transmission Date: 20111010
  Serious: Yes (Disabling, Other)
  Sender: FDA-Public Use
  Company Number: GB-BRISTOL-MYERS SQUIBB COMPANY-15672728

PATIENT
  Age: 56 Year
  Sex: Male
  Weight: 78 kg

DRUGS (11)
  1. RAMIPRIL [Concomitant]
     Dosage: CAPSULE
     Route: 048
     Dates: start: 20091020
  2. PRAVASTATIN SODIUM [Suspect]
     Indication: BLOOD CHOLESTEROL INCREASED
     Route: 048
     Dates: start: 20060119, end: 20110321
  3. NITRAZEPAM [Concomitant]
     Dosage: TAB,AT NIGHT
     Dates: start: 20070727
  4. AMOXICILLIN [Concomitant]
     Route: 048
     Dates: start: 20110321
  5. BETAHISTINE DIHYDROCHLORIDE [Concomitant]
     Dosage: TAB
     Route: 048
     Dates: start: 20090907
  6. AMLODIPINE [Concomitant]
     Dosage: TAB
     Route: 048
     Dates: start: 20100526
  7. FLUOXETINE HYDROCHLORIDE [Concomitant]
     Dosage: CAPSULE
     Dates: start: 20061102
  8. SPIRIVA [Concomitant]
     Dosage: IN THE MORNING
     Route: 055
     Dates: start: 20080630
  9. PRILOSEC [Concomitant]
     Dosage: CAPSULE
     Route: 048
     Dates: start: 20040729
  10. CIALIS [Concomitant]
     Dosage: AS DIRECTED,TABLET
     Route: 048
     Dates: start: 20050531
  11. ALBUTEROL SULFATE AUTOHALER [Concomitant]
     Route: 055
     Dates: start: 20070405

REACTIONS (10)
  - COUGH [None]
  - SYNCOPE [None]
  - RECTAL HAEMORRHAGE [None]
  - HEADACHE [None]
  - VERTIGO [None]
  - MYALGIA [None]
  - PRESYNCOPE [None]
  - DIZZINESS [None]
  - ARTHRALGIA [None]
  - NAUSEA [None]
